FAERS Safety Report 11274136 (Version 2)
Quarter: 2015Q3

REPORT INFORMATION
  Report Type: Spontaneous
  Country: FR (occurrence: FR)
  Receive Date: 20150715
  Receipt Date: 20150722
  Transmission Date: 20151125
  Serious: Yes (Congenital Anomaly, Other)
  Sender: FDA-Public Use
  Company Number: FR-TEVA-577521ISR

PATIENT
  Age: 53 Year
  Sex: Male

DRUGS (7)
  1. ETOPOSIDE TEVA 20 MG/ML [Suspect]
     Active Substance: ETOPOSIDE
     Indication: ANAPLASTIC LARGE-CELL LYMPHOMA
     Dosage: 200 MG/M2 DAILY; PROTOCOL BEEAM (BENDAMUSTINE, ETOPOSIDE, CYTARABINE AND MELPHALAN)
     Route: 042
     Dates: start: 20150124, end: 20150127
  2. CYTARABINE SANDOZ 100 MG/ML [Suspect]
     Active Substance: CYTARABINE
     Indication: ANAPLASTIC LARGE-CELL LYMPHOMA
     Dosage: 400 MG/M2 DAILY; PROTOCOL BEEAM (BENDAMUSTINE, ETOPOSIDE, CYTARABINE AND MELPHALAN)
     Dates: start: 20150124, end: 20150127
  3. ZOPHREN [Concomitant]
     Active Substance: ONDANSETRON
  4. LEVACT 2.5 MG/ML [Suspect]
     Active Substance: BENDAMUSTINE HYDROCHLORIDE
     Indication: ANAPLASTIC LARGE-CELL LYMPHOMA
     Dosage: 200 MG/M2 DAILY; PROTOCOL BEEAM (BENDAMUSTINE, ETOPOSIDE, CYTARABINE AND MELPHALAN)
     Route: 042
     Dates: start: 20150122, end: 20150123
  5. METHYLPREDNISOLONE MYLAN [Concomitant]
     Active Substance: METHYLPREDNISOLONE
     Route: 042
  6. ALKERAN [Suspect]
     Active Substance: MELPHALAN
     Indication: ANAPLASTIC LARGE-CELL LYMPHOMA
     Route: 042
     Dates: start: 20150128, end: 20150128
  7. EMEND [Suspect]
     Active Substance: APREPITANT
     Route: 048

REACTIONS (1)
  - Aplasia [Recovered/Resolved]

NARRATIVE: CASE EVENT DATE: 20150131
